FAERS Safety Report 12616410 (Version 3)
Quarter: 2016Q3

REPORT INFORMATION
  Report Type: Spontaneous
  Country: US (occurrence: US)
  Receive Date: 20160802
  Receipt Date: 20160815
  Transmission Date: 20161109
  Serious: Yes (Other)
  Sender: FDA-Public Use
  Company Number: US-SMITH AND NEPHEW, INC-2016SMT00617

PATIENT
  Age: 69 Year
  Sex: Male
  Weight: 97.51 kg

DRUGS (5)
  1. COLLAGENASE SANTYL [Suspect]
     Active Substance: COLLAGENASE CLOSTRIDIUM HISTOLYTICUM
     Indication: SKIN ULCER
  2. CHLORHEXIDINE [Concomitant]
     Active Substance: CHLORHEXIDINE
  3. UNSPECIFIED INSULIN USED IN PUMP [Concomitant]
     Dosage: UNK
  4. UNSPECIFIED OTHER MEDICATIONS [Concomitant]
     Active Substance: UNSPECIFIED INGREDIENT
  5. REGRANEX [Suspect]
     Active Substance: BECAPLERMIN
     Indication: SKIN ULCER
     Dosage: UNK
     Route: 061
     Dates: start: 201606

REACTIONS (3)
  - Wound secretion [Unknown]
  - Osteomyelitis [Not Recovered/Not Resolved]
  - Peripheral vascular disorder [Unknown]

NARRATIVE: CASE EVENT DATE: 201606
